FAERS Safety Report 7640452-7 (Version None)
Quarter: 2011Q3

REPORT INFORMATION
  Report Type: 
  Country: None (occurrence: None)
  Receive Date: 20110728
  Receipt Date: 20110719
  Transmission Date: 20111222
  Serious: Yes (Other)
  Sender: FDA-Public Use
  Company Number: 185503

PATIENT
  Age: 51 Year
  Sex: Female

DRUGS (3)
  1. BENAZAMYCIN [Concomitant]
     Indication: ACNE
  2. OGEN [Concomitant]
     Indication: OSTEOPOROSIS PROPHYLAXIS
  3. AVONEX [Suspect]
     Indication: MULTIPLE SCLEROSIS
     Route: 030
     Dates: start: 19990101, end: 20040102

REACTIONS (4)
  - HEPATIC ENZYME INCREASED [None]
  - HEPATITIS TOXIC [None]
  - CHRONIC HEPATITIS [None]
  - MUSCULAR WEAKNESS [None]
